FAERS Safety Report 4500126-8 (Version None)
Quarter: 2004Q4

REPORT INFORMATION
  Report Type: 
  Country: None (occurrence: None)
  Receive Date: 20041112
  Receipt Date: 20040308
  Transmission Date: 20050328
  Serious: Yes (Hospitalization)
  Sender: FDA-Public Use
  Company Number: PHNU2004DE01216

PATIENT
  Age: 58 Year
  Sex: Female
  Weight: 44 kg

DRUGS (4)
  1. CLOZARIL [Suspect]
     Indication: PSYCHOTIC DISORDER
     Dosage: 300 MG/DAY
     Route: 048
     Dates: start: 20030901, end: 20031201
  2. CLOZARIL [Suspect]
     Dosage: 175 MG/DAY
     Route: 048
     Dates: start: 20031201
  3. CLOZARIL [Suspect]
     Dosage: 100 MG/DAY
     Route: 048
     Dates: end: 20040101
  4. CLOZARIL [Suspect]
     Dosage: UNKNOWN
     Route: 048
     Dates: start: 20040101, end: 20040501

REACTIONS (4)
  - HYPERTENSION [None]
  - NOREPINEPHRINE INCREASED [None]
  - PSEUDOPHAEOCHROMOCYTOMA [None]
  - TACHYCARDIA [None]
